FAERS Safety Report 11002733 (Version 1)
Quarter: 2015Q2

REPORT INFORMATION
  Report Type: Report from Study
  Country: US (occurrence: US)
  Receive Date: 20150408
  Receipt Date: 20150408
  Transmission Date: 20150821
  Serious: Yes (Other)
  Sender: FDA-Public Use
  Company Number: US-GILEAD-2015-0147379

PATIENT
  Age: 53 Year
  Sex: Male

DRUGS (3)
  1. TORSEMIDE. [Concomitant]
     Active Substance: TORSEMIDE
     Indication: FLUID RETENTION
     Dosage: UNK
     Dates: end: 20150326
  2. LEDIPASVIR/SOFOSBUVIR [Suspect]
     Active Substance: LEDIPASVIR\SOFOSBUVIR
     Indication: CHRONIC HEPATITIS C
     Dosage: 1 DF, UNK
     Route: 048
     Dates: start: 20150328
  3. VALSARTAN. [Concomitant]
     Active Substance: VALSARTAN
     Indication: FLUID RETENTION
     Dosage: UNK

REACTIONS (1)
  - Nephrotic syndrome [Unknown]
